FAERS Safety Report 5289090-4 (Version None)
Quarter: 2007Q1

REPORT INFORMATION
  Report Type: 
  Country: None (occurrence: None)
  Receive Date: 20070122
  Receipt Date: 20061030
  Transmission Date: 20070707
  Serious: Yes (Life-Threatening, Other)
  Sender: FDA-Public Use
  Company Number: PHEH2006US06622

PATIENT
  Sex: Female

DRUGS (5)
  1. SANDOSTATIN LAR [Suspect]
     Indication: CARCINOID SYNDROME
     Dosage: SEE IMAGE
     Route: 030
     Dates: start: 20020101, end: 20030101
  2. SANDOSTATIN LAR [Suspect]
     Indication: CARCINOID SYNDROME
     Dosage: SEE IMAGE
     Route: 030
     Dates: start: 20030101, end: 20060101
  3. SANDOSTATIN LAR [Suspect]
     Indication: CARCINOID SYNDROME
     Dosage: SEE IMAGE
     Route: 030
     Dates: start: 20060101, end: 20060301
  4. SANDOSTATIN LAR [Suspect]
     Indication: CARCINOID SYNDROME
     Dosage: SEE IMAGE
     Route: 030
     Dates: start: 20060401
  5. VITAMINS [Concomitant]

REACTIONS (11)
  - ANOREXIA [None]
  - ARRHYTHMIA [None]
  - BACK PAIN [None]
  - BLOOD GLUCOSE DECREASED [None]
  - BLOOD POTASSIUM DECREASED [None]
  - DRUG INEFFECTIVE [None]
  - DYSPEPSIA [None]
  - FEELING COLD [None]
  - MUSCLE SPASMS [None]
  - NAUSEA [None]
  - SYNCOPE [None]
